FAERS Safety Report 12378835 (Version 4)
Quarter: 2016Q3

REPORT INFORMATION
  Report Type: Report from Study
  Country: US (occurrence: US)
  Receive Date: 20160517
  Receipt Date: 20160708
  Transmission Date: 20161109
  Serious: Yes (Hospitalization)
  Sender: FDA-Public Use
  Company Number: US-ACTELION-A-NJ2016-131719

PATIENT
  Age: 59 Year
  Sex: Female

DRUGS (5)
  1. TRACLEER [Suspect]
     Active Substance: BOSENTAN
     Indication: PULMONARY HYPERTENSION
     Dosage: 125 MG, BID
     Route: 048
     Dates: start: 20081105
  2. TYVASO [Concomitant]
     Active Substance: TREPROSTINIL
  3. DILTIAZEM. [Concomitant]
     Active Substance: DILTIAZEM
  4. TREPROSTINIL DIOLAMIN [Concomitant]
     Active Substance: TREPROSTINIL DIOLAMINE
  5. ADCIRCA [Concomitant]
     Active Substance: TADALAFIL

REACTIONS (7)
  - Wheezing [Unknown]
  - Lung infection [Unknown]
  - Influenza like illness [Unknown]
  - Dyspnoea [Unknown]
  - Lower respiratory tract congestion [Unknown]
  - Pneumothorax spontaneous [Unknown]
  - Diarrhoea [Unknown]
